FAERS Safety Report 6800658-3 (Version None)
Quarter: 2010Q2

REPORT INFORMATION
  Report Type: 
  Country: None (occurrence: None)
  Receive Date: 20100625
  Receipt Date: 20100625
  Transmission Date: 20101027
  Serious: Yes (Life-Threatening, Hospitalization, Disabling)
  Sender: FDA-Public Use
  Company Number: None

PATIENT
  Sex: Female
  Weight: 76.8 kg

DRUGS (1)
  1. IXABEPILONE 2 45 MG VIALS BRISTOL-MEYERS SQUIBB [Suspect]
     Indication: BREAST CANCER
     Dosage: 70 MG EVERY 21 DAYS IV DRIP
     Route: 041
     Dates: start: 20100517, end: 20100614

REACTIONS (9)
  - BACK PAIN [None]
  - BLOOD PRESSURE INCREASED [None]
  - CARDIO-RESPIRATORY ARREST [None]
  - ERYTHEMA [None]
  - HYPERHIDROSIS [None]
  - INFUSION RELATED REACTION [None]
  - NAUSEA [None]
  - PULSE ABSENT [None]
  - RESTLESSNESS [None]
